FAERS Safety Report 19483384 (Version 1)
Quarter: 2021Q3

REPORT INFORMATION
  Report Type: Spontaneous
  Country: FR (occurrence: FR)
  Receive Date: 20210701
  Receipt Date: 20210701
  Transmission Date: 20211014
  Serious: Yes (Other)
  Sender: FDA-Public Use
  Company Number: FR-PFIZER INC-2021750771

PATIENT
  Age: 90 Year
  Sex: Female

DRUGS (4)
  1. AMLODIPINE BESILATE [Suspect]
     Active Substance: AMLODIPINE BESYLATE
     Indication: HYPERTENSION
     Dosage: UNK
  2. IRBESARTAN MYLAN [Suspect]
     Active Substance: IRBESARTAN
     Indication: HYPERTENSION
     Dosage: UNK
     Dates: start: 20210328
  3. NEBIVOLOL MYLAN [Suspect]
     Active Substance: NEBIVOLOL
     Indication: HYPERTENSION
     Dosage: UNK
     Dates: start: 202105, end: 20210523
  4. IRBESARTAN MYLAN [Suspect]
     Active Substance: IRBESARTAN
     Dosage: 150 MG, (SPLITTING A TABLET OF 300MG IN 2 PIECES)
     Dates: start: 202105

REACTIONS (10)
  - Dyspnoea at rest [Unknown]
  - Decreased appetite [Unknown]
  - Dry mouth [Unknown]
  - Insomnia [Unknown]
  - Pain in extremity [Unknown]
  - Blood pressure decreased [Unknown]
  - Nausea [Unknown]
  - Cough [Unknown]
  - Gait disturbance [Unknown]
  - Oedema peripheral [Unknown]

NARRATIVE: CASE EVENT DATE: 202104
